FAERS Safety Report 8377078-6 (Version None)
Quarter: 2012Q2

REPORT INFORMATION
  Report Type: 
  Country: None (occurrence: None)
  Receive Date: 20120522
  Receipt Date: 20120510
  Transmission Date: 20120825
  Serious: Yes (Hospitalization)
  Sender: FDA-Public Use
  Company Number: US-ELI_LILLY_AND_COMPANY-US200710002400

PATIENT
  Sex: Female

DRUGS (17)
  1. FORTEO [Suspect]
     Indication: OSTEOPOROSIS
     Dosage: 20 UG, QD
     Route: 065
     Dates: start: 20070801, end: 20071008
  2. OXYCONTIN [Concomitant]
     Dosage: 30 MG, BID
  3. OXYCODONE HCL [Concomitant]
     Indication: PAIN
     Dosage: 15 MG, BID
  4. ZOFRAN [Concomitant]
     Indication: NAUSEA
     Dosage: 8 MG, EVERY 6 HRS
  5. FAMOTIDINE [Concomitant]
     Dosage: 40 MG, BID
     Route: 048
  6. CYMBALTA [Suspect]
     Indication: DEPRESSION
     Dosage: 30 MG, BID
     Dates: start: 20020101
  7. AMITIZA [Concomitant]
     Dosage: 2 DF, PRN
  8. FORTEO [Suspect]
     Dosage: 20 UG, QD
  9. FORTEO [Suspect]
     Dosage: 20 UG, QD
  10. OXYCONTIN [Concomitant]
     Indication: PAIN
     Dosage: 30 MG, QD
  11. XANAX [Concomitant]
     Dosage: 3 DF, PRN
  12. TRIAMTERENE AND HYDROCHLOROTHIAZIDE [Concomitant]
     Dosage: 1 DF, PRN
  13. FORTEO [Suspect]
     Dosage: 20 UG, QD
  14. EVISTA [Suspect]
     Indication: OSTEOPOROSIS
     Dosage: UNK
     Dates: start: 19970101, end: 20070701
  15. FORTEO [Suspect]
     Dosage: 20 UG, QD
  16. BOTOX [Concomitant]
     Indication: MIGRAINE
  17. ANALGESICS [Concomitant]
     Indication: PAIN

REACTIONS (27)
  - DEPRESSION [None]
  - HYPOPHAGIA [None]
  - SENSORY DISTURBANCE [None]
  - MOBILITY DECREASED [None]
  - BONE DENSITY DECREASED [None]
  - FALL [None]
  - GAIT DISTURBANCE [None]
  - MEDICATION ERROR [None]
  - VISUAL ACUITY REDUCED [None]
  - RESTLESS LEGS SYNDROME [None]
  - THINKING ABNORMAL [None]
  - NAUSEA [None]
  - WEIGHT DECREASED [None]
  - SCOLIOSIS [None]
  - CONFUSIONAL STATE [None]
  - SPINAL COLUMN STENOSIS [None]
  - BACK DISORDER [None]
  - VISION BLURRED [None]
  - MUSCLE SPASMS [None]
  - BACK PAIN [None]
  - NEURALGIA [None]
  - VOMITING [None]
  - PANIC REACTION [None]
  - ASTHENIA [None]
  - MIGRAINE [None]
  - DRUG DOSE OMISSION [None]
  - PAIN [None]
